FAERS Safety Report 23577103 (Version 1)
Quarter: 2024Q1

REPORT INFORMATION
  Report Type: Spontaneous
  Country: US (occurrence: US)
  Receive Date: 20240228
  Receipt Date: 20240228
  Transmission Date: 20240409
  Serious: No
  Sender: FDA-Public Use
  Company Number: US-PFIZER INC-202400049550

PATIENT
  Age: 8 Year
  Sex: Male
  Weight: 14 kg

DRUGS (1)
  1. LORBRENA [Suspect]
     Active Substance: LORLATINIB
     Indication: Neoplasm malignant
     Dosage: UNK UNK, 1X/DAY
     Route: 048
     Dates: start: 202312

REACTIONS (4)
  - Pancreatic disorder [Unknown]
  - Malabsorption [Unknown]
  - Weight decreased [Not Recovered/Not Resolved]
  - Off label use [Unknown]

NARRATIVE: CASE EVENT DATE: 20231201
